FAERS Safety Report 8299377-9 (Version None)
Quarter: 2012Q2

REPORT INFORMATION
  Report Type: 
  Country: None (occurrence: None)
  Receive Date: 20120419
  Receipt Date: 20120416
  Transmission Date: 20120825
  Serious: Yes (Other)
  Sender: FDA-Public Use
  Company Number: US-PFIZER INC-2012094255

PATIENT
  Sex: Female

DRUGS (2)
  1. LYRICA [Suspect]
     Dosage: UNK
     Route: 048
     Dates: start: 20120125
  2. CORTISONE ACETATE [Suspect]
     Dosage: UNK

REACTIONS (5)
  - VISION BLURRED [None]
  - SWELLING [None]
  - DIZZINESS [None]
  - ADRENAL INSUFFICIENCY [None]
  - DRY MOUTH [None]
